FAERS Safety Report 5665238-4 (Version None)
Quarter: 2008Q1

REPORT INFORMATION
  Report Type: 
  Country: None (occurrence: None)
  Receive Date: 20080314
  Receipt Date: 20070801
  Transmission Date: 20080703
  Serious: No
  Sender: FDA-Public Use
  Company Number: US-ABBOTT-07P-163-0377000-00

PATIENT
  Sex: Male
  Weight: 91 kg

DRUGS (2)
  1. HUMIRA [Suspect]
     Indication: PSORIASIS
     Route: 058
     Dates: start: 20070601
  2. HUMIRA [Suspect]
     Route: 058
     Dates: start: 20051104, end: 20070301

REACTIONS (2)
  - PAIN [None]
  - ULCER [None]
